FAERS Safety Report 22127382 (Version 2)
Quarter: 2023Q2

REPORT INFORMATION
  Report Type: Spontaneous
  Country: US (occurrence: US)
  Receive Date: 20230322
  Receipt Date: 20230414
  Transmission Date: 20230721
  Serious: No
  Sender: FDA-Public Use
  Company Number: US-ALLERGAN-2237995US

PATIENT
  Weight: 3.628 kg

DRUGS (2)
  1. LEXAPRO [Suspect]
     Active Substance: ESCITALOPRAM OXALATE
     Indication: Maternal exposure timing unspecified
     Dosage: 10 MG
     Route: 063
  2. LILETTA [Suspect]
     Active Substance: LEVONORGESTREL
     Indication: Maternal exposure timing unspecified
     Dosage: 52 MG, SINGLE
     Route: 063
     Dates: start: 20221101, end: 20221101

REACTIONS (1)
  - Maternal exposure during breast feeding [Unknown]
